FAERS Safety Report 7085465-1 (Version None)
Quarter: 2010Q4

REPORT INFORMATION
  Report Type: 
  Country: None (occurrence: None)
  Receive Date: 20101005
  Receipt Date: 20100204
  Transmission Date: 20110411
  Serious: Yes (Other)
  Sender: FDA-Public Use
  Company Number: US-WYE-H13402610

PATIENT
  Age: 50 Year
  Sex: Male
  Weight: 65.38 kg

DRUGS (4)
  1. RAPAMUNE [Suspect]
     Indication: CONGENITAL CYSTIC KIDNEY DISEASE
     Dosage: 1 MG 1X PER 1 DAY, ORAL ; 1 MG 1X PER 1 DAY, ORAL
     Route: 048
     Dates: start: 20091019, end: 20100122
  2. RAPAMUNE [Suspect]
     Indication: CONGENITAL CYSTIC KIDNEY DISEASE
     Dosage: 1 MG 1X PER 1 DAY, ORAL ; 1 MG 1X PER 1 DAY, ORAL
     Route: 048
     Dates: start: 20100215, end: 20100223
  3. LOTREL [Concomitant]
  4. PANTOPRAZOLE SODIUM [Concomitant]

REACTIONS (3)
  - CELLULITIS STAPHYLOCOCCAL [None]
  - EXTERNAL EAR CELLULITIS [None]
  - PSEUDOMONAS INFECTION [None]
